FAERS Safety Report 24128203 (Version 1)
Quarter: 2024Q3

REPORT INFORMATION
  Report Type: Report from Study
  Country: US (occurrence: US)
  Receive Date: 20240723
  Receipt Date: 20240723
  Transmission Date: 20241017
  Serious: Yes (Hospitalization, Other)
  Sender: GILEAD
  Company Number: US-GILEAD-2024-0681371

PATIENT
  Sex: Male

DRUGS (2)
  1. AZTREONAM LYSINE [Suspect]
     Active Substance: AZTREONAM LYSINE
     Indication: Pseudomonas infection
     Dosage: 75MG - INHALE THE CONTENTS OF 1 VIAL THREE TIMES DAILY VIA NEBULIZER FOR 28 DAYS ON, 28 DAYS OFF.
     Route: 055
     Dates: start: 20220622
  2. AZTREONAM LYSINE [Suspect]
     Active Substance: AZTREONAM LYSINE
     Dosage: INHALE 75MG (1 VIAL) VIA ALTERA NEBULIZER THREE TIMES DAILY 28 DAYS ON 28 DAYS OFF
     Route: 055
     Dates: start: 20100708

REACTIONS (2)
  - Loss of consciousness [Not Recovered/Not Resolved]
  - Off label use [Not Recovered/Not Resolved]
